FAERS Safety Report 7292503-X (Version None)
Quarter: 2011Q1

REPORT INFORMATION
  Report Type: 
  Country: None (occurrence: None)
  Receive Date: 20110215
  Receipt Date: 20110208
  Transmission Date: 20110831
  Serious: Yes (Disabling)
  Sender: FDA-Public Use
  Company Number: GB-PFIZER INC-2011028798

PATIENT
  Age: 74 Year
  Sex: Female
  Weight: 73 kg

DRUGS (4)
  1. AMILORIDE HYDROCHLORIDE AND HYDROCHLOROTHIAZIDE [Concomitant]
     Dosage: UNK
     Dates: start: 20101021, end: 20101118
  2. ENOXAPARIN SODIUM [Concomitant]
     Dosage: UNK
     Dates: start: 20101018, end: 20101211
  3. SANDO K [Concomitant]
     Dosage: UNK
     Dates: start: 20101013, end: 20101202
  4. AROMASIN [Suspect]
     Dosage: UNK
     Dates: start: 20100101

REACTIONS (1)
  - MALAISE [None]
